FAERS Safety Report 8439324-X (Version None)
Quarter: 2012Q2

REPORT INFORMATION
  Report Type: 
  Country: None (occurrence: None)
  Receive Date: 20120615
  Receipt Date: 20120612
  Transmission Date: 20120825
  Serious: Yes (Hospitalization)
  Sender: FDA-Public Use
  Company Number: US-PFIZER INC-2012141896

PATIENT
  Sex: Male
  Weight: 81.633 kg

DRUGS (9)
  1. REVATIO [Suspect]
     Indication: PULMONARY HYPERTENSION
     Dosage: 20 MG, 3X/DAY
     Route: 048
  2. PANTOPRAZOLE [Concomitant]
     Dosage: UNK
  3. CLONIDINE [Concomitant]
     Indication: HYPERTENSION
     Dosage: UNK, AS NEEDED
  4. CALCIUM [Concomitant]
     Dosage: UNK
  5. HYDROCODONE [Concomitant]
     Dosage: UNK
  6. OMEPRAZOLE [Concomitant]
     Dosage: UNK
  7. AMITRIPTYLINE [Concomitant]
     Dosage: UNK
  8. MINOXIDIL [Concomitant]
     Dosage: UNK
  9. ANDROGEL [Concomitant]
     Dosage: UNK

REACTIONS (3)
  - ANKLE FRACTURE [None]
  - LOCALISED INFECTION [None]
  - INCISION SITE INFECTION [None]
